FAERS Safety Report 10956710 (Version 1)
Quarter: 2015Q1

REPORT INFORMATION
  Report Type: Spontaneous
  Country: US (occurrence: None)
  Receive Date: 20150325
  Receipt Date: 20150325
  Transmission Date: 20150721
  Serious: Yes (Other)
  Sender: FDA-Public Use
  Company Number: None

PATIENT
  Age: 43 Year
  Sex: Male
  Weight: 113.4 kg

DRUGS (2)
  1. TESTOPEL [Suspect]
     Active Substance: TESTOSTERONE
     Indication: ENDOCRINE DISORDER
     Dosage: 75 MG X14?EVERY FOUR MONTHS
     Route: 058
     Dates: start: 20141113, end: 20150324
  2. LINSONOPRIL [Concomitant]

REACTIONS (7)
  - Aggression [None]
  - Depersonalisation [None]
  - Impulsive behaviour [None]
  - Feeling abnormal [None]
  - Anger [None]
  - Irritability [None]
  - Mania [None]

NARRATIVE: CASE EVENT DATE: 20141125
